FAERS Safety Report 8960979 (Version 1)
Quarter: 2012Q4

REPORT INFORMATION
  Report Type: 
  Country: US (occurrence: US)
  Receive Date: 20121212
  Receipt Date: 20121212
  Transmission Date: 20130627
  Serious: Yes (Other)
  Sender: FDA-Public Use
  Company Number: US-B.I. PHARMACEUTICALS,INC./RIDGEFIELD-2012-BI-02668PF

PATIENT
  Sex: Female
  Weight: 140.61 kg

DRUGS (17)
  1. SPIRIVA [Suspect]
     Indication: CHRONIC OBSTRUCTIVE PULMONARY DISEASE
     Dosage: 18 mcg
     Route: 055
     Dates: start: 201205
  2. LIPITOR [Suspect]
     Indication: BLOOD CHOLESTEROL INCREASED
     Dates: start: 2012, end: 2012
  3. SINGULAIR [Concomitant]
     Dosage: 3 mg
  4. ORTHO MICRONOR [Concomitant]
     Dosage: 0.35 mg
  5. BENADRYL [Concomitant]
  6. RANITIDINE [Concomitant]
  7. GLIPIZIDE [Concomitant]
  8. NAPROSYN [Concomitant]
  9. CLONAZEPAM [Concomitant]
     Dosage: 6 mg
  10. METFORMIN [Concomitant]
     Dosage: 2000 mg
  11. LISINOPRIL [Concomitant]
     Dosage: 40 mg
  12. ASPIRIN [Concomitant]
  13. DICYCLOMINE [Concomitant]
  14. SIMVASTATIN [Concomitant]
  15. MULTIVITAMINS [Concomitant]
  16. PROVENTIL HFA [Concomitant]
  17. ATROVENT HFA [Concomitant]

REACTIONS (7)
  - Convulsion [Unknown]
  - Memory impairment [Unknown]
  - Confusional state [Unknown]
  - Drug hypersensitivity [Unknown]
  - Swollen tongue [Unknown]
  - Oedema mouth [Unknown]
  - Influenza [Not Recovered/Not Resolved]
